FAERS Safety Report 10020841 (Version 2)
Quarter: 2014Q1

REPORT INFORMATION
  Report Type: Spontaneous
  Country: US (occurrence: US)
  Receive Date: 20140319
  Receipt Date: 20140319
  Transmission Date: 20141002
  Serious: Yes (Disabling)
  Sender: FDA-Public Use
  Company Number: US-GE HEALTHCARE MEDICAL DIAGNOSTICS-OSCN-PR-0902S-0066

PATIENT
  Age: 51 Year
  Sex: Male

DRUGS (5)
  1. OMNISCAN [Suspect]
     Indication: OEDEMA PERIPHERAL
     Dates: start: 20050211, end: 20050211
  2. OMNISCAN [Suspect]
     Indication: LOCAL SWELLING
     Dates: start: 20060307, end: 20060307
  3. OMNISCAN [Suspect]
     Indication: LOCAL SWELLING
     Dates: start: 20060314, end: 20060314
  4. OMNISCAN [Suspect]
     Indication: LOCAL SWELLING
     Dates: start: 20060501, end: 20060501
  5. MAGNEVIST [Suspect]
     Indication: PRODUCT USED FOR UNKNOWN INDICATION
     Route: 042
     Dates: start: 20060223, end: 20060223

REACTIONS (1)
  - Nephrogenic systemic fibrosis [Not Recovered/Not Resolved]
